FAERS Safety Report 25140698 (Version 1)
Quarter: 2025Q1

REPORT INFORMATION
  Report Type: Spontaneous
  Country: US (occurrence: US)
  Receive Date: 20250331
  Receipt Date: 20250331
  Transmission Date: 20250408
  Serious: Yes (Hospitalization)
  Sender: IRON THERAPEUTICS
  Company Number: US-SHIELD THERAPEUTICS-US-STX-25-00107

PATIENT
  Age: 53 Year
  Sex: Female

DRUGS (11)
  1. ACCRUFER [Suspect]
     Active Substance: FERRIC MALTOL
     Indication: Product used for unknown indication
     Dosage: 30 MILLIGRAM, BID
     Route: 048
     Dates: start: 20250219
  2. PROGESTERONE [Concomitant]
     Active Substance: PROGESTERONE
     Indication: Product used for unknown indication
     Route: 065
  3. CALCIUM [Concomitant]
     Active Substance: CALCIUM
     Indication: Product used for unknown indication
     Route: 065
  4. CHOLECALCIFEROL [Concomitant]
     Active Substance: CHOLECALCIFEROL
     Indication: Product used for unknown indication
     Route: 065
  5. QUERCETIN [Concomitant]
     Active Substance: QUERCETIN
     Indication: Product used for unknown indication
     Route: 065
  6. NALTREXONE [Concomitant]
     Active Substance: NALTREXONE
     Indication: Product used for unknown indication
     Route: 065
  7. PREDNISONE [Concomitant]
     Active Substance: PREDNISONE
     Indication: Product used for unknown indication
     Route: 065
  8. DIPHENHYDRAMINE [Concomitant]
     Active Substance: DIPHENHYDRAMINE
     Indication: Product used for unknown indication
     Route: 065
  9. ALBUTEROL [Concomitant]
     Active Substance: ALBUTEROL
     Indication: Product used for unknown indication
     Route: 065
  10. XOLAIR [Concomitant]
     Active Substance: OMALIZUMAB
     Indication: Product used for unknown indication
     Route: 065
  11. KETOTIFEN [Concomitant]
     Active Substance: KETOTIFEN
     Indication: Product used for unknown indication
     Route: 065

REACTIONS (4)
  - Angioedema [Recovered/Resolved]
  - Dyspnoea [Recovered/Resolved]
  - Heart rate decreased [Recovered/Resolved]
  - Hypoxia [Recovered/Resolved]
